FAERS Safety Report 20867378 (Version 1)
Quarter: 2022Q2

REPORT INFORMATION
  Report Type: Spontaneous
  Country: US (occurrence: None)
  Receive Date: 20220524
  Receipt Date: 20220524
  Transmission Date: 20220720
  Serious: Yes (Hospitalization)
  Sender: FDA-Public Use
  Company Number: None

PATIENT
  Sex: Male
  Weight: 132.6 kg

DRUGS (2)
  1. CARBOPLATIN [Suspect]
     Active Substance: CARBOPLATIN
     Dates: end: 20220507
  2. ETOPOSIDE [Suspect]
     Active Substance: ETOPOSIDE
     Dates: end: 20220507

REACTIONS (15)
  - Body temperature increased [None]
  - Platelet count decreased [None]
  - Metastases to central nervous system [None]
  - White blood cell count decreased [None]
  - Haemoglobin decreased [None]
  - Blood culture positive [None]
  - Bacterial infection [None]
  - Serratia test positive [None]
  - Protein urine present [None]
  - Blood urine present [None]
  - Chills [None]
  - Febrile neutropenia [None]
  - Sinus tachycardia [None]
  - Tachypnoea [None]
  - Blood lactic acid increased [None]

NARRATIVE: CASE EVENT DATE: 20220515
